FAERS Safety Report 23609079 (Version 1)
Quarter: 2024Q1

REPORT INFORMATION
  Report Type: Spontaneous
  Country: GB (occurrence: GB)
  Receive Date: 20240308
  Receipt Date: 20240308
  Transmission Date: 20240410
  Serious: Yes (Death, Life-Threatening, Other)
  Sender: FDA-Public Use
  Company Number: None

PATIENT
  Age: 77 Year
  Sex: Female

DRUGS (1)
  1. MEMANTINE [Suspect]
     Active Substance: MEMANTINE
     Indication: Dementia
     Dosage: UNKNOWN
     Route: 065
     Dates: start: 20210408

REACTIONS (2)
  - Product prescribing error [Fatal]
  - Cardiac failure [Fatal]

NARRATIVE: CASE EVENT DATE: 20240227
